FAERS Safety Report 20950613 (Version 4)
Quarter: 2023Q2

REPORT INFORMATION
  Report Type: Report from Study
  Country: US (occurrence: US)
  Receive Date: 20220613
  Receipt Date: 20230427
  Transmission Date: 20230722
  Serious: No
  Sender: FDA-Public Use
  Company Number: US-KYOWAKIRIN-2022BKK008774

PATIENT

DRUGS (4)
  1. BUROSUMAB [Suspect]
     Active Substance: BUROSUMAB
     Indication: Phosphorus metabolism disorder
     Dosage: 90 MG, 1X/4 WEEKS
     Route: 058
     Dates: start: 202204
  2. BUROSUMAB [Suspect]
     Active Substance: BUROSUMAB
     Dosage: 90 MG, 1X/4 WEEKS
     Route: 042
  3. BUROSUMAB [Suspect]
     Active Substance: BUROSUMAB
     Dosage: 90 MG, 1X/MONTH
     Route: 042
  4. BUROSUMAB [Suspect]
     Active Substance: BUROSUMAB
     Indication: Hereditary hypophosphataemic rickets
     Dosage: 90 MG, 1X/4 WEEKS
     Route: 058
     Dates: start: 20200724

REACTIONS (10)
  - Depression [Unknown]
  - Anxiety [Unknown]
  - Nasopharyngitis [Unknown]
  - Staphylococcal infection [Unknown]
  - Influenza [Unknown]
  - Arthralgia [Not Recovered/Not Resolved]
  - Product use in unapproved indication [Not Recovered/Not Resolved]
  - Sleeve gastrectomy [Unknown]
  - Incorrect route of product administration [Not Recovered/Not Resolved]
  - Gastric bypass [Unknown]

NARRATIVE: CASE EVENT DATE: 20220401
